FAERS Safety Report 8107505-0 (Version None)
Quarter: 2011Q4

REPORT INFORMATION
  Report Type: 
  Country: None (occurrence: None)
  Receive Date: 20111227
  Receipt Date: 20110912
  Transmission Date: 20120403
  Serious: Yes (Other)
  Sender: FDA-Public Use
  Company Number: PHEH2011US03704

PATIENT
  Age: 63 Year
  Weight: 104.3 kg

DRUGS (2)
  1. GILENYA [Suspect]
     Dosage: ORAL ; ORAL
     Route: 048
     Dates: start: 20110812
  2. GILENYA [Suspect]
     Dosage: ORAL ; ORAL
     Route: 048
     Dates: start: 20110823

REACTIONS (1)
  - ATRIOVENTRICULAR BLOCK SECOND DEGREE [None]
